APPROVED DRUG PRODUCT: AZELASTINE HYDROCHLORIDE
Active Ingredient: AZELASTINE HYDROCHLORIDE
Strength: 0.2055MG/SPRAY
Dosage Form/Route: SPRAY, METERED;NASAL
Application: A212775 | Product #001
Applicant: AUROBINDO PHARMA LTD
Approved: Nov 12, 2020 | RLD: No | RS: No | Type: DISCN